FAERS Safety Report 23397532 (Version 2)
Quarter: 2024Q1

REPORT INFORMATION
  Report Type: Spontaneous
  Country: US (occurrence: US)
  Receive Date: 20240112
  Receipt Date: 20240212
  Transmission Date: 20240410
  Serious: Yes (Other)
  Sender: FDA-Public Use
  Company Number: US-ORGANON-O2401USA000898

PATIENT
  Age: 35 Year
  Sex: Female
  Weight: 99.773 kg

DRUGS (1)
  1. NEXPLANON [Suspect]
     Active Substance: ETONOGESTREL
     Dosage: 1 IMPLANT, 68 MG, IN LEFT UPPER ARM, EVERY THREE YEARS
     Route: 059
     Dates: start: 20231027, end: 20240201

REACTIONS (2)
  - Device dislocation [Recovered/Resolved]
  - Inappropriate schedule of product administration [Unknown]

NARRATIVE: CASE EVENT DATE: 20231027
